FAERS Safety Report 15023476 (Version 1)
Quarter: 2018Q2

REPORT INFORMATION
  Report Type: Spontaneous
  Country: US (occurrence: US)
  Receive Date: 20180602
  Receipt Date: 20180602
  Transmission Date: 20180711
  Serious: No
  Sender: FDA-Public Use
  Company Number: None

PATIENT
  Age: 34 Year
  Sex: Female
  Weight: 90 kg

DRUGS (21)
  1. LISINOPRIL HCTZ [Concomitant]
     Active Substance: HYDROCHLOROTHIAZIDE\LISINOPRIL
  2. MEN^S MULTI-VITAMIN [Concomitant]
  3. RANITIDINE. [Concomitant]
     Active Substance: RANITIDINE
  4. VITAMIN B COMPLEX [Concomitant]
     Active Substance: CYANOCOBALAMIN\DEXPANTHENOL\NIACINAMIDE\PYRIDOXINE HYDROCHLORIDE\RIBOFLAVIN 5^-PHOSPHATE SODIUM\THIAMINE HYDROCHLORIDE\VITAMIN B COMPLEX
  5. ZILRETTA [Suspect]
     Active Substance: TRIAMCINOLONE ACETONIDE
     Indication: OSTEOARTHRITIS
     Dates: start: 20180412
  6. LOW DOSE NALTREXONE [Concomitant]
     Active Substance: NALTREXONE
  7. PARAFON FORTE [Concomitant]
     Active Substance: CHLORZOXAZONE
  8. VITAMIN C [Concomitant]
     Active Substance: ASCORBIC ACID
  9. PROAIR INHALER [Concomitant]
     Active Substance: ALBUTEROL SULFATE
  10. LATUDA [Concomitant]
     Active Substance: LURASIDONE HYDROCHLORIDE
  11. ECHINACEA [Concomitant]
     Active Substance: ECHINACEA, UNSPECIFIED
  12. FIORICET [Concomitant]
     Active Substance: ACETAMINOPHEN\BUTALBITAL\CAFFEINE
  13. PRAZOSIN. [Concomitant]
     Active Substance: PRAZOSIN
  14. CELEBREX [Concomitant]
     Active Substance: CELECOXIB
  15. SEROQUEL [Concomitant]
     Active Substance: QUETIAPINE FUMARATE
  16. GABAPENTIN. [Concomitant]
     Active Substance: GABAPENTIN
  17. PREMARIN [Concomitant]
     Active Substance: ESTROGENS, CONJUGATED
  18. CBD OIL [Concomitant]
     Active Substance: CANNABIDIOL
  19. VITAMIN D3 [Concomitant]
     Active Substance: CHOLECALCIFEROL
  20. ACIDOPHILUS PROBIOTIC [Concomitant]
  21. 5-HTP [Concomitant]
     Active Substance: OXITRIPTAN

REACTIONS (9)
  - Pain [None]
  - Gait disturbance [None]
  - Swelling [None]
  - Joint stiffness [None]
  - Muscle spasms [None]
  - Joint noise [None]
  - Bipolar disorder [None]
  - Anxiety [None]
  - Borderline personality disorder [None]

NARRATIVE: CASE EVENT DATE: 20180412
